FAERS Safety Report 7515855-1 (Version None)
Quarter: 2011Q2

REPORT INFORMATION
  Report Type: 
  Country: None (occurrence: None)
  Receive Date: 20110601
  Receipt Date: 20110525
  Transmission Date: 20111010
  Serious: No
  Sender: FDA-Public Use
  Company Number: US-PFIZER INC-2011113235

PATIENT

DRUGS (5)
  1. IRINOTECAN HCL [Suspect]
     Indication: PANCREATIC CARCINOMA
     Route: 041
  2. FLUOROURACIL [Suspect]
     Indication: PANCREATIC CARCINOMA
     Route: 041
  3. LEUCOVORIN CALCIUM [Suspect]
     Indication: PANCREATIC CARCINOMA
     Route: 041
  4. ELOXATIN [Suspect]
     Indication: PANCREATIC CARCINOMA
     Route: 041
  5. CAMPTOSAR [Concomitant]

REACTIONS (2)
  - SPEECH DISORDER [None]
  - TONGUE DISORDER [None]
